FAERS Safety Report 14985043 (Version 1)
Quarter: 2018Q2

REPORT INFORMATION
  Report Type: Report from Study
  Country: CA (occurrence: CA)
  Receive Date: 20180607
  Receipt Date: 20180607
  Transmission Date: 20180711
  Serious: Yes (Other)
  Sender: FDA-Public Use
  Company Number: CA-JNJFOC-20180417704

PATIENT
  Age: 47 Year
  Sex: Female
  Weight: 106 kg

DRUGS (1)
  1. REMICADE [Suspect]
     Active Substance: INFLIXIMAB
     Indication: HIDRADENITIS
     Route: 042

REACTIONS (4)
  - Ear infection [Unknown]
  - Skin cancer [Recovering/Resolving]
  - Influenza [Unknown]
  - Genital abscess [Recovering/Resolving]

NARRATIVE: CASE EVENT DATE: 20180528
